FAERS Safety Report 19070739 (Version 2)
Quarter: 2021Q2

REPORT INFORMATION
  Report Type: Spontaneous
  Country: GB (occurrence: GB)
  Receive Date: 20210330
  Receipt Date: 20210423
  Transmission Date: 20210717
  Serious: Yes (Hospitalization, Other)
  Sender: FDA-Public Use
  Company Number: GB-ACCORD-220752

PATIENT
  Sex: Female

DRUGS (14)
  1. RIFAMPICIN [Interacting]
     Active Substance: RIFAMPIN
     Indication: ENDOCARDITIS BACTERIAL
     Dosage: UNK
  2. DAPTOMYCIN. [Interacting]
     Active Substance: DAPTOMYCIN
     Indication: APLASTIC ANAEMIA
  3. CIPROFLOXACIN/CIPROFLOXACIN HYDROCHLORIDE/CIPROFLOXACIN LACTATE [Interacting]
     Active Substance: CIPROFLOXACIN
     Indication: ENDOCARDITIS BACTERIAL
  4. FLUCONAZOLE. [Interacting]
     Active Substance: FLUCONAZOLE
     Indication: ENDOCARDITIS BACTERIAL
  5. CICLOSPORIN [Interacting]
     Active Substance: CYCLOSPORINE
     Indication: APLASTIC ANAEMIA
  6. CIPROFLOXACIN/CIPROFLOXACIN HYDROCHLORIDE/CIPROFLOXACIN LACTATE [Interacting]
     Active Substance: CIPROFLOXACIN
     Indication: APLASTIC ANAEMIA
  7. NEORAL [Interacting]
     Active Substance: CYCLOSPORINE
     Indication: APLASTIC ANAEMIA
     Dosage: UNK
  8. CICLOSPORIN [Interacting]
     Active Substance: CYCLOSPORINE
     Indication: ENDOCARDITIS BACTERIAL
  9. CUBICIN [Interacting]
     Active Substance: DAPTOMYCIN
     Indication: APLASTIC ANAEMIA
  10. FLUCONAZOLE. [Interacting]
     Active Substance: FLUCONAZOLE
     Indication: APLASTIC ANAEMIA
  11. CUBICIN [Interacting]
     Active Substance: DAPTOMYCIN
     Indication: ENDOCARDITIS BACTERIAL
  12. DAPTOMYCIN. [Suspect]
     Active Substance: DAPTOMYCIN
     Indication: ENDOCARDITIS BACTERIAL
  13. NEORAL [Interacting]
     Active Substance: CYCLOSPORINE
     Indication: ENDOCARDITIS BACTERIAL
     Dosage: UNK
  14. RIFAMPICIN [Interacting]
     Active Substance: RIFAMPIN
     Indication: APLASTIC ANAEMIA
     Dosage: UNK

REACTIONS (1)
  - Drug interaction [Unknown]
